FAERS Safety Report 5815793-6 (Version None)
Quarter: 2008Q3

REPORT INFORMATION
  Report Type: 
  Country: None (occurrence: None)
  Receive Date: 20080721
  Receipt Date: 20080707
  Transmission Date: 20090109
  Serious: Yes (Other)
  Sender: FDA-Public Use
  Company Number: US-BAYER-200827375NA

PATIENT
  Age: 44 Year
  Sex: Female
  Weight: 62 kg

DRUGS (2)
  1. MIRENA [Suspect]
     Indication: CONTRACEPTION
     Route: 015
     Dates: start: 20041004
  2. PRILOSEC [Concomitant]
     Indication: GASTROOESOPHAGEAL REFLUX DISEASE

REACTIONS (6)
  - ABDOMINAL PAIN [None]
  - GENITAL HAEMORRHAGE [None]
  - HEART RATE INCREASED [None]
  - IUCD COMPLICATION [None]
  - OVARIAN CYST [None]
  - VAGINAL HAEMORRHAGE [None]
